FAERS Safety Report 11203057 (Version 1)
Quarter: 2015Q2

REPORT INFORMATION
  Report Type: Spontaneous
  Country: US (occurrence: None)
  Receive Date: 20150618
  Receipt Date: 20150618
  Transmission Date: 20150821
  Serious: No
  Sender: FDA-Public Use
  Company Number: None

PATIENT
  Age: 72 Year
  Sex: Male

DRUGS (1)
  1. HYDROCHLOROTHIAZIDE. [Suspect]
     Active Substance: HYDROCHLOROTHIAZIDE
     Indication: HYPERTENSION
     Route: 048
     Dates: start: 20121210, end: 20121220

REACTIONS (4)
  - Skin discolouration [None]
  - Rash [None]
  - Hyponatraemia [None]
  - Hypokalaemia [None]

NARRATIVE: CASE EVENT DATE: 20121220
